FAERS Safety Report 11288009 (Version 2)
Quarter: 2015Q3

REPORT INFORMATION
  Report Type: Spontaneous
  Country: IN (occurrence: IN)
  Receive Date: 20150721
  Receipt Date: 20150724
  Transmission Date: 20151125
  Serious: Yes (Other)
  Sender: FDA-Public Use
  Company Number: IN-009507513-1507IND007879

PATIENT
  Age: 61 Year
  Sex: Male
  Weight: 94 kg

DRUGS (2)
  1. JANUMET [Suspect]
     Active Substance: METFORMIN HYDROCHLORIDE\SITAGLIPTIN PHOSPHATE
     Dosage: 0.5 DF, BID
     Route: 048
     Dates: start: 20150719
  2. JANUMET [Suspect]
     Active Substance: METFORMIN HYDROCHLORIDE\SITAGLIPTIN PHOSPHATE
     Indication: DIABETES MELLITUS
     Dosage: 50/1000 MG (1 DF), BID
     Route: 048
     Dates: end: 20150711

REACTIONS (5)
  - Chest injury [Unknown]
  - Wrong technique in product usage process [Unknown]
  - Syncope [Unknown]
  - Inappropriate schedule of drug administration [Unknown]
  - Seizure [Unknown]

NARRATIVE: CASE EVENT DATE: 20150616
